FAERS Safety Report 17356426 (Version 1)
Quarter: 2020Q1

REPORT INFORMATION
  Report Type: Spontaneous
  Country: ES (occurrence: ES)
  Receive Date: 20200131
  Receipt Date: 20200131
  Transmission Date: 20200409
  Serious: Yes (Life-Threatening, Other)
  Sender: FDA-Public Use
  Company Number: NVSC2019ES001001

PATIENT
  Age: 58 Year
  Sex: Male

DRUGS (9)
  1. MONTELUKAST [Suspect]
     Active Substance: MONTELUKAST SODIUM
     Indication: PREMEDICATION
     Dosage: UNK
     Route: 065
     Dates: start: 2018
  2. RANITIDINE. [Suspect]
     Active Substance: RANITIDINE
     Indication: PREMEDICATION
     Dosage: UNK
     Route: 065
     Dates: start: 2018
  3. SALICYLIC ACID. [Suspect]
     Active Substance: SALICYLIC ACID
     Indication: PREMEDICATION
     Dosage: UNK
     Route: 065
     Dates: start: 2018
  4. CAPECITABINE. [Concomitant]
     Active Substance: CAPECITABINE
     Indication: RECTAL ADENOCARCINOMA
     Dosage: RECEIVED 7 CHEMOTHERAPY CYCLES (OXALIPLATIN- CAPECITABINE).
     Route: 065
     Dates: end: 2015
  5. CAPECITABINE. [Concomitant]
     Active Substance: CAPECITABINE
     Dosage: RECEIVED 7 CHEMOTHERAPY CYCLES (OXALIPLATIN- CAPECITABINE).
     Route: 065
     Dates: end: 2015
  6. OMALIZUMAB. [Suspect]
     Active Substance: OMALIZUMAB
     Indication: PREMEDICATION
     Dosage: 300 MG
     Route: 065
  7. OXALIPLATIN. [Suspect]
     Active Substance: OXALIPLATIN
     Indication: RECTAL ADENOCARCINOMA
     Dosage: RECEIVED 7 CHEMOTHERAPY CYCLES (OXALIPLATIN- CAPECITABINE).
     Route: 042
     Dates: end: 2015
  8. DEXCHLORPHENIRAMINE [Suspect]
     Active Substance: DEXCHLORPHENIRAMINE
     Indication: PREMEDICATION
     Dosage: UNK
     Route: 065
     Dates: start: 2018
  9. OMALIZUMAB. [Suspect]
     Active Substance: OMALIZUMAB
     Dosage: 300 MG
     Route: 065
     Dates: start: 2018

REACTIONS (8)
  - Oxygen saturation decreased [Unknown]
  - Drug ineffective [Unknown]
  - Bradycardia [Unknown]
  - Depressed level of consciousness [Unknown]
  - Pruritus [Unknown]
  - Dyspnoea [Unknown]
  - Erythema [Unknown]
  - Hypersensitivity [Unknown]
